FAERS Safety Report 9993471 (Version 2)
Quarter: 2014Q2

REPORT INFORMATION
  Report Type: Report from Study
  Country: JP (occurrence: JP)
  Receive Date: 20140310
  Receipt Date: 20140416
  Transmission Date: 20141212
  Serious: No
  Sender: FDA-Public Use
  Company Number: JP-PFIZER INC-2014065686

PATIENT
  Age: 66 Year
  Sex: Male
  Weight: 57.2 kg

DRUGS (18)
  1. REVATIO [Suspect]
     Indication: PULMONARY HYPERTENSION
     Dosage: 5 MG, 1X/DAY
     Route: 048
     Dates: start: 20120830, end: 20120831
  2. REVATIO [Suspect]
     Dosage: 5 MG, 3X/DAY
     Route: 048
     Dates: start: 20120901, end: 20120904
  3. REVATIO [Suspect]
     Dosage: 10 MG, 3X/DAY
     Route: 048
     Dates: start: 20120905, end: 20120911
  4. REVATIO [Suspect]
     Dosage: 5 MG, 3X/DAY
     Route: 048
     Dates: start: 20120912
  5. METHYCOBAL [Concomitant]
     Dosage: UNK
     Route: 048
     Dates: end: 20121113
  6. SELBEX [Concomitant]
     Indication: GASTRITIS PROPHYLAXIS
     Dosage: UNK
     Route: 048
     Dates: end: 20121113
  7. JUVELA N [Concomitant]
     Dosage: UNK
     Route: 048
     Dates: end: 20121113
  8. LASIX [Concomitant]
     Dosage: UNK
     Route: 048
  9. PREDNISOLONE [Concomitant]
     Dosage: UNK
     Route: 048
  10. ONE-ALPHA [Concomitant]
     Indication: PROPHYLAXIS
     Dosage: UNK
     Route: 048
  11. RISUMIC [Concomitant]
     Dosage: UNK
     Route: 048
     Dates: end: 20121113
  12. AROTINOLOL HYDROCHLORIDE [Concomitant]
     Dosage: UNK
     Route: 048
     Dates: end: 20121113
  13. CALTAN [Concomitant]
     Dosage: UNK
     Route: 048
  14. GASMOTIN [Concomitant]
     Indication: PROPHYLAXIS
     Dosage: UNK
     Route: 048
  15. TRYPTANOL [Concomitant]
     Dosage: UNK
     Route: 048
  16. SEPAZON [Concomitant]
     Dosage: UNK
     Route: 048
  17. NESP [Concomitant]
     Dosage: UNK
     Route: 042
     Dates: end: 20121112
  18. PRINK [Concomitant]
     Dosage: UNK
     Route: 042

REACTIONS (1)
  - Hot flush [Recovering/Resolving]
